FAERS Safety Report 4850351-1 (Version None)
Quarter: 2005Q4

REPORT INFORMATION
  Report Type: 
  Country: None (occurrence: None)
  Receive Date: 20051207
  Receipt Date: 20051207
  Transmission Date: 20060501
  Serious: Yes (Hospitalization)
  Sender: FDA-Public Use
  Company Number: None

PATIENT
  Age: 53 Year
  Sex: Male
  Weight: 80 kg

DRUGS (1)
  1. DIVALPROEX EC [Suspect]
     Indication: EPILEPSY
     Dosage: 750MG BID

REACTIONS (3)
  - HYPONATRAEMIA [None]
  - POLLAKIURIA [None]
  - POLYDIPSIA [None]
